FAERS Safety Report 7712841-3 (Version None)
Quarter: 2011Q3

REPORT INFORMATION
  Report Type: 
  Country: None (occurrence: None)
  Receive Date: 20110826
  Receipt Date: 20110815
  Transmission Date: 20111222
  Serious: Yes (Other)
  Sender: FDA-Public Use
  Company Number: PHEH2011US01589

PATIENT
  Sex: Female

DRUGS (8)
  1. TYLENOL-500 [Suspect]
     Dosage: UNK UKN, UNK
  2. CALCIUM CARBONATE [Concomitant]
     Dosage: UNK UKN, UNK
  3. PROLOID [Suspect]
     Dosage: UNK UKN, UNK
  4. SYNTHROID [Concomitant]
     Dosage: UNK UKN, UNK
  5. RECLAST [Suspect]
     Dosage: 5 MG/ 100 ML
     Route: 042
     Dates: start: 20110812
  6. ARNICA MONTANA [Concomitant]
     Dosage: UNK UKN, UNK
  7. TIMOPTIC [Suspect]
     Dosage: 3 GRAINS PER DAY
  8. VITAMIN D [Concomitant]
     Dosage: UNK UKN, UNK

REACTIONS (14)
  - ASTHENIA [None]
  - CARDIAC DISORDER [None]
  - HERPES ZOSTER [None]
  - RHEUMATOID ARTHRITIS [None]
  - BONE PAIN [None]
  - SKIN BURNING SENSATION [None]
  - NAUSEA [None]
  - PAIN [None]
  - OEDEMA PERIPHERAL [None]
  - PYREXIA [None]
  - HEADACHE [None]
  - JOINT SWELLING [None]
  - BONE DENSITY ABNORMAL [None]
  - ERYTHEMA [None]
